FAERS Safety Report 6337595-7 (Version None)
Quarter: 2009Q3

REPORT INFORMATION
  Report Type: 
  Country: None (occurrence: None)
  Receive Date: 20090902
  Receipt Date: 20090826
  Transmission Date: 20100115
  Serious: Yes (Other)
  Sender: FDA-Public Use
  Company Number: US-ROCHE-653279

PATIENT
  Age: 51 Year
  Sex: Male

DRUGS (3)
  1. VALIUM [Suspect]
     Route: 048
  2. DIAZEPAM [Suspect]
     Route: 065
     Dates: start: 20080201
  3. PROPYL-THIOURACIL [Concomitant]
     Dosage: DRUG: PROPYLTHIORUCIL

REACTIONS (1)
  - HYPOTHYROIDISM [None]
